FAERS Safety Report 20120743 (Version 1)
Quarter: 2021Q4

REPORT INFORMATION
  Report Type: Spontaneous
  Country: US (occurrence: None)
  Receive Date: 20211126
  Receipt Date: 20211126
  Transmission Date: 20220303
  Serious: Yes (Hospitalization)
  Sender: FDA-Public Use
  Company Number: None

PATIENT
  Age: 26 Year
  Sex: Female
  Weight: 121.5 kg

DRUGS (1)
  1. .DELTA.8-TETRAHYDROCANNABINOL\HERBALS [Suspect]
     Active Substance: .DELTA.8-TETRAHYDROCANNABINOL\HERBALS
     Indication: Feeling of relaxation
     Dosage: OTHER QUANTITY : 1 GUMMY;?FREQUENCY : AS NEEDED;?OTHER ROUTE : EATEN;?
     Route: 050
     Dates: start: 20211122, end: 20211122

REACTIONS (1)
  - Anxiety [None]

NARRATIVE: CASE EVENT DATE: 20211126
